FAERS Safety Report 16769549 (Version 6)
Quarter: 2020Q1

REPORT INFORMATION
  Report Type: Spontaneous
  Country: DE (occurrence: DE)
  Receive Date: 20190903
  Receipt Date: 20200330
  Transmission Date: 20200409
  Serious: Yes (Hospitalization, Other)
  Sender: FDA-Public Use
  Company Number: DE-BEH-2019106307

PATIENT
  Age: 49 Year
  Sex: Female
  Weight: 77 kg

DRUGS (9)
  1. HAEMATE P [Suspect]
     Active Substance: ANTIHEMOPHILIC FACTOR HUMAN
     Indication: ACQUIRED VON WILLEBRAND^S DISEASE
  2. FERINJECT [Concomitant]
     Active Substance: FERRIC CARBOXYMALTOSE
     Dosage: UNK
     Dates: start: 20190923
  3. PRIVIGEN [Suspect]
     Active Substance: HUMAN IMMUNOGLOBULIN G
     Indication: BLOOD TEST ABNORMAL
     Dosage: 1 GRAM PER KILOGRAM OVER 2 DAYS
     Route: 042
     Dates: start: 20190902, end: 20190903
  4. HAEMATE P [Suspect]
     Active Substance: ANTIHEMOPHILIC FACTOR HUMAN
     Indication: VON WILLEBRAND^S DISEASE
     Dosage: 3000 INTERNATIONAL UNIT, TOT
     Route: 042
     Dates: start: 20190820, end: 20190820
  5. PRIVIGEN [Suspect]
     Active Substance: HUMAN IMMUNOGLOBULIN G
     Indication: VON WILLEBRAND^S FACTOR ANTIBODY
  6. HAEMATE P [Suspect]
     Active Substance: ANTIHEMOPHILIC FACTOR HUMAN
     Indication: ACQUIRED VON WILLEBRAND^S DISEASE
  7. PRIVIGEN [Suspect]
     Active Substance: HUMAN IMMUNOGLOBULIN G
     Indication: IMMUNOMODULATORY THERAPY
     Dosage: 1 GRAM PER KILOGRAM OVEWR 2 DAYS
     Route: 042
     Dates: start: 20191014, end: 20191015
  8. JODID [Concomitant]
     Active Substance: IODINE
     Dosage: 200 MILLIGRAM, QD
  9. HAEMATE P [Suspect]
     Active Substance: ANTIHEMOPHILIC FACTOR HUMAN
     Indication: VON WILLEBRAND^S DISEASE
     Dosage: 3000 INTERNATIONAL UNIT, TOT
     Route: 042
     Dates: start: 20190820, end: 20190820

REACTIONS (17)
  - Visual impairment [Recovered/Resolved]
  - Dyspnoea [Unknown]
  - Limb discomfort [Recovered/Resolved]
  - Cardiomegaly [Not Recovered/Not Resolved]
  - Internal haemorrhage [Recovered/Resolved]
  - Internal haemorrhage [Recovered/Resolved]
  - Occult blood positive [Recovered/Resolved]
  - Internal haemorrhage [Recovered/Resolved]
  - Paraesthesia oral [Recovered/Resolved]
  - No adverse event [Unknown]
  - Blood pressure increased [Recovered/Resolved]
  - Confusional state [Recovered/Resolved]
  - Internal haemorrhage [Recovered/Resolved]
  - Product use in unapproved indication [Unknown]
  - Heart rate increased [Recovered/Resolved]
  - Hypersensitivity [Unknown]
  - Drug intolerance [Not Recovered/Not Resolved]

NARRATIVE: CASE EVENT DATE: 201908
